FAERS Safety Report 15886851 (Version 2)
Quarter: 2020Q3

REPORT INFORMATION
  Report Type: Spontaneous
  Country: FR (occurrence: FR)
  Receive Date: 20190129
  Receipt Date: 20200929
  Transmission Date: 20201102
  Serious: Yes (Hospitalization, Other)
  Sender: FDA-Public Use
  Company Number: FR-AUROBINDO-AUR-APL-2019-004117

PATIENT
  Age: 77 Year
  Sex: Female

DRUGS (2)
  1. LEVOFLOXACIN. [Suspect]
     Active Substance: LEVOFLOXACIN
     Indication: INFECTION
     Dosage: 1250 MILLIGRAM
     Route: 042
     Dates: start: 20181126
  2. ORBENINE [Suspect]
     Active Substance: CLOXACILLIN SODIUM
     Indication: INFECTION
     Dosage: 8 GRAM
     Route: 065
     Dates: start: 20181123, end: 201812

REACTIONS (1)
  - Hyperbilirubinaemia [Recovered/Resolved]

NARRATIVE: CASE EVENT DATE: 20181129
